FAERS Safety Report 21445534 (Version 1)
Quarter: 2022Q4

REPORT INFORMATION
  Report Type: Spontaneous
  Country: US (occurrence: US)
  Receive Date: 20221012
  Receipt Date: 20221012
  Transmission Date: 20230113
  Serious: Yes (Other)
  Sender: FDA-Public Use
  Company Number: US-Blueprint Medicines Corporation-480

PATIENT
  Sex: Male

DRUGS (2)
  1. AYVAKIT [Suspect]
     Active Substance: AVAPRITINIB
     Indication: Systemic mastocytosis
     Dosage: 50MG ALTERNATING WITH 25MG EVERY OTHER DAY
     Route: 065
     Dates: start: 20211130
  2. AYVAKIT [Suspect]
     Active Substance: AVAPRITINIB
     Dosage: 50MG ALTERNATING WITH 25MG EVERY OTHER DAY
     Route: 065
     Dates: start: 20211130

REACTIONS (8)
  - Skin neoplasm excision [Unknown]
  - Post procedural haemorrhage [Recovered/Resolved]
  - Surgery [Unknown]
  - Platelet count decreased [Unknown]
  - Skin lesion [Unknown]
  - Vomiting [Unknown]
  - Pyrexia [Unknown]
  - Cough [Unknown]
